FAERS Safety Report 8496007-8 (Version None)
Quarter: 2012Q3

REPORT INFORMATION
  Report Type: 
  Country: None (occurrence: None)
  Receive Date: 20120709
  Receipt Date: 20120628
  Transmission Date: 20120928
  Serious: No
  Sender: FDA-Public Use
  Company Number: US-PFIZER INC-2012159112

PATIENT
  Sex: Female

DRUGS (1)
  1. VANCOMYCIN HYCHLORIDE [Suspect]
     Dosage: 1 DF, UNK
     Route: 042

REACTIONS (1)
  - RED MAN SYNDROME [None]
